FAERS Safety Report 23286135 (Version 2)
Quarter: 2023Q4

REPORT INFORMATION
  Report Type: Spontaneous
  Country: US (occurrence: None)
  Receive Date: 20231212
  Receipt Date: 20231213
  Transmission Date: 20240109
  Serious: Yes (Other)
  Sender: FDA-Public Use
  Company Number: US-Orion Corporation ORION PHARMA-ENT 2023-0060

PATIENT
  Age: 76 Year
  Sex: Female

DRUGS (4)
  1. COMTAN [Suspect]
     Active Substance: ENTACAPONE
     Indication: Parkinson^s disease
     Dosage: STRENGTH: 200 MG
  2. SINEMET [Suspect]
     Active Substance: CARBIDOPA\LEVODOPA
     Indication: Parkinson^s disease
  3. ONGENTYS [Suspect]
     Active Substance: OPICAPONE
     Indication: Parkinson^s disease
     Dates: start: 20230905, end: 20230926
  4. INGREZZA [Suspect]
     Active Substance: VALBENAZINE
     Indication: Product used for unknown indication
     Dates: end: 20230926

REACTIONS (7)
  - Tardive dyskinesia [Recovered/Resolved]
  - Drug effect less than expected [Recovered/Resolved]
  - Product prescribing issue [Unknown]
  - Product complaint [Unknown]
  - Weight decreased [Recovered/Resolved]
  - Mania [Recovered/Resolved]
  - Dyspepsia [Unknown]

NARRATIVE: CASE EVENT DATE: 20230101
